FAERS Safety Report 20540665 (Version 1)
Quarter: 2022Q1

REPORT INFORMATION
  Report Type: Spontaneous
  Country: FR (occurrence: FR)
  Receive Date: 20220302
  Receipt Date: 20220302
  Transmission Date: 20220424
  Serious: Yes (Other)
  Sender: FDA-Public Use
  Company Number: FR-ABBVIE-22K-056-4298415-00

PATIENT
  Age: 75 Year
  Sex: Female

DRUGS (1)
  1. VALPROATE SODIUM [Suspect]
     Active Substance: VALPROATE SODIUM
     Indication: Epilepsy
     Dosage: IN THE MORNING
     Route: 065

REACTIONS (5)
  - Ear discomfort [Unknown]
  - Deafness unilateral [Unknown]
  - Product prescribing error [Unknown]
  - Nausea [Recovered/Resolved]
  - Tremor [Recovered/Resolved]
